FAERS Safety Report 15853840 (Version 3)
Quarter: 2019Q2

REPORT INFORMATION
  Report Type: Spontaneous
  Country: US (occurrence: US)
  Receive Date: 20190122
  Receipt Date: 20190402
  Transmission Date: 20190711
  Serious: No
  Sender: FDA-Public Use
  Company Number: US-PFIZER INC-2019028315

PATIENT
  Age: 61 Year
  Sex: Female

DRUGS (1)
  1. EUCRISA [Suspect]
     Active Substance: CRISABOROLE
     Dosage: UNK, 2X/DAY (APPLIED TO THE AFFECTED AREA TWICE A DAY)
     Route: 061
     Dates: start: 201801

REACTIONS (2)
  - Application site pain [Unknown]
  - Application site burn [Unknown]
